FAERS Safety Report 13614258 (Version 1)
Quarter: 2017Q2

REPORT INFORMATION
  Report Type: Spontaneous
  Country: US (occurrence: US)
  Receive Date: 20170605
  Receipt Date: 20170605
  Transmission Date: 20170830
  Serious: No
  Sender: FDA-Public Use
  Company Number: None

PATIENT
  Sex: Male

DRUGS (1)
  1. LOVENOX [Suspect]
     Active Substance: ENOXAPARIN SODIUM
     Route: 058

REACTIONS (3)
  - Accidental exposure to product [None]
  - Injury associated with device [None]
  - Device malfunction [None]

NARRATIVE: CASE EVENT DATE: 20170604
